FAERS Safety Report 6993542-6 (Version None)
Quarter: 2010Q3

REPORT INFORMATION
  Report Type: 
  Country: None (occurrence: None)
  Receive Date: 20100917
  Receipt Date: 20100607
  Transmission Date: 20110219
  Serious: No
  Sender: FDA-Public Use
  Company Number: US-ASTRAZENECA-2010SE26227

PATIENT
  Age: 20390 Day
  Sex: Female
  Weight: 78 kg

DRUGS (6)
  1. SEROQUEL [Suspect]
     Indication: INSOMNIA
     Route: 048
     Dates: start: 20070101
  2. SEROQUEL [Suspect]
     Indication: ANALGESIC THERAPY
     Route: 048
     Dates: start: 20070101
  3. AMLODIPINE [Concomitant]
  4. TRAMADOL [Concomitant]
  5. HYDROCHLOROTHIAZIDE [Concomitant]
  6. DIAZEPAM [Concomitant]

REACTIONS (1)
  - ROAD TRAFFIC ACCIDENT [None]
